FAERS Safety Report 11650995 (Version 2)
Quarter: 2015Q4

REPORT INFORMATION
  Report Type: Spontaneous
  Country: US (occurrence: US)
  Receive Date: 20151021
  Receipt Date: 20151118
  Transmission Date: 20160304
  Serious: No
  Sender: FDA-Public Use
  Company Number: ALCN2015US006651

PATIENT
  Sex: Female

DRUGS (2)
  1. TRAVATAN Z [Suspect]
     Active Substance: TRAVOPROST
     Indication: GLAUCOMA
     Dosage: 1 GTT, QHS
     Route: 047
     Dates: start: 201507, end: 20151020
  2. TRAVATAN Z [Suspect]
     Active Substance: TRAVOPROST
     Dosage: 1 GTT, QHS
     Route: 047
     Dates: start: 201510

REACTIONS (4)
  - Paraesthesia [Recovering/Resolving]
  - Blepharal pigmentation [Not Recovered/Not Resolved]
  - Hypoaesthesia [Recovering/Resolving]
  - Eyelid margin crusting [Not Recovered/Not Resolved]
